FAERS Safety Report 5478425-5 (Version None)
Quarter: 2007Q4

REPORT INFORMATION
  Report Type: 
  Country: None (occurrence: None)
  Receive Date: 20071005
  Receipt Date: 20071002
  Transmission Date: 20080405
  Serious: Yes (Life-Threatening, Hospitalization)
  Sender: FDA-Public Use
  Company Number: AU-MERCK-01103592

PATIENT
  Age: 70 Year
  Sex: Female

DRUGS (8)
  1. FOSAMAX [Suspect]
     Indication: BONE DISORDER
     Route: 065
     Dates: end: 19990101
  2. CELECOXIB [Suspect]
     Indication: BONE DISORDER
     Route: 048
     Dates: end: 19991031
  3. MORPHINE SULFATE [Concomitant]
     Route: 065
  4. IRBESARTAN [Concomitant]
     Route: 065
  5. CYCLOSPORINE [Concomitant]
     Route: 065
  6. PREDNISONE [Concomitant]
     Route: 065
  7. AZATHIOPRINE [Concomitant]
     Route: 065
     Dates: end: 19990101
  8. DOXEPIN HYDROCHLORIDE [Concomitant]
     Route: 065

REACTIONS (5)
  - ANAEMIA [None]
  - DEHYDRATION [None]
  - HAEMATEMESIS [None]
  - PNEUMONIA [None]
  - RENAL IMPAIRMENT [None]
